FAERS Safety Report 17660746 (Version 1)
Quarter: 2020Q2

REPORT INFORMATION
  Report Type: Spontaneous
  Country: US (occurrence: US)
  Receive Date: 20200410
  Receipt Date: 20200410
  Transmission Date: 20200713
  Serious: Yes (Other)
  Sender: FDA-Public Use
  Company Number: None

PATIENT
  Age: 51 Year
  Sex: Female
  Weight: 48.6 kg

DRUGS (1)
  1. HYDROXYZINE HL [Suspect]
     Active Substance: HYDROXYZINE HYDROCHLORIDE
     Indication: BLADDER PAIN
     Dosage: ?          QUANTITY:1 TABLET(S);?
     Route: 048

REACTIONS (1)
  - Anxiety [None]

NARRATIVE: CASE EVENT DATE: 20170411
